FAERS Safety Report 7001273-1 (Version None)
Quarter: 2010Q3

REPORT INFORMATION
  Report Type: 
  Country: None (occurrence: None)
  Receive Date: 20100920
  Receipt Date: 20100908
  Transmission Date: 20110219
  Serious: Yes (Death, Other)
  Sender: FDA-Public Use
  Company Number: JP-ROCHE-726540

PATIENT
  Age: 70 Year
  Sex: Male

DRUGS (10)
  1. CELLCEPT [Suspect]
     Indication: PROPHYLAXIS AGAINST TRANSPLANT REJECTION
     Route: 048
  2. CYCLOSPORINE [Concomitant]
     Dosage: DOSE UNCERTAIN
  3. METHYLPREDNISOLONE [Concomitant]
     Dosage: NOTE: 1MG/KG1 2MG/KG
  4. TACROLIMUS [Concomitant]
     Dosage: DOSE UNCERTAIN
  5. PENTOSTATIN [Concomitant]
     Dosage: DOSE UNCERTAIN
     Route: 041
  6. METHOTREXATE [Concomitant]
  7. FLUDARABINE [Concomitant]
  8. FLUDARABINE [Concomitant]
  9. BUSULFAN [Concomitant]
  10. FK-506 [Concomitant]

REACTIONS (6)
  - DIARRHOEA [None]
  - INFECTION [None]
  - MELAENA [None]
  - MULTI-ORGAN FAILURE [None]
  - RENAL FAILURE [None]
  - THROMBOTIC MICROANGIOPATHY [None]
